FAERS Safety Report 21077899 (Version 1)
Quarter: 2022Q3

REPORT INFORMATION
  Report Type: Spontaneous
  Country: CN (occurrence: CN)
  Receive Date: 20220713
  Receipt Date: 20220713
  Transmission Date: 20221027
  Serious: Yes (Other)
  Sender: FDA-Public Use
  Company Number: None

PATIENT
  Age: 61 Year
  Sex: Female
  Weight: 76 kg

DRUGS (9)
  1. CYCLOPHOSPHAMIDE [Suspect]
     Active Substance: CYCLOPHOSPHAMIDE
     Indication: Breast cancer female
     Dosage: UNK, QD, 1ST CHEMOTHERAPY, CYCLOPHOSPHAMIDE + SODIUM CHLORIDE
     Route: 042
  2. CYCLOPHOSPHAMIDE [Suspect]
     Active Substance: CYCLOPHOSPHAMIDE
     Dosage: 1050 MG, QD, (DOSAGE FORM: POWDER INJECTION), SECOND CHEMOTHERAPY, CYCLOPHOSPHAMIDE 1050 MG + NS 55
     Route: 042
     Dates: start: 20220517, end: 20220517
  3. SODIUM CHLORIDE [Suspect]
     Active Substance: SODIUM CHLORIDE
     Indication: Medication dilution
     Dosage: UNK, QD, 1ST CHEMOTHERAPY, CYCLOPHOSPHAMIDE + SODIUM CHLORIDE
     Route: 042
  4. SODIUM CHLORIDE [Suspect]
     Active Substance: SODIUM CHLORIDE
     Dosage: 55 ML, QD, SECOND CHEMOTHERAPY, CYCLOPHOSPHAMIDE 1050 MG + NS 55 ML
     Route: 042
     Dates: start: 20220517, end: 20220517
  5. SODIUM CHLORIDE [Suspect]
     Active Substance: SODIUM CHLORIDE
     Dosage: UNK, QD, 1ST CHEMOTHERAPY, DOCETAXEL + SODIUM CHLORIDE
     Route: 041
  6. SODIUM CHLORIDE [Suspect]
     Active Substance: SODIUM CHLORIDE
     Dosage: 250 ML, QD, SECOND CHEMOTHERAPY, DOCETAXEL 138 MG + NS 250 ML
     Route: 041
  7. DOCETAXEL [Suspect]
     Active Substance: DOCETAXEL
     Indication: Breast cancer female
     Dosage: UNK, QD, 1ST CHEMOTHERAPY, DOCETAXEL + SODIUM CHLORIDE
     Route: 041
  8. DOCETAXEL [Suspect]
     Active Substance: DOCETAXEL
     Dosage: 138 MG, QD, SECOND CHEMOTHERAPY, DOCETAXEL 138 MG + NS 250 ML
     Route: 041
     Dates: start: 20220517, end: 20220517
  9. Jin you li [Concomitant]
     Indication: Product used for unknown indication
     Dosage: 3 MG
     Route: 058
     Dates: start: 202205

REACTIONS (2)
  - White blood cell count decreased [Recovered/Resolved]
  - Agranulocytosis [Recovered/Resolved]

NARRATIVE: CASE EVENT DATE: 20220523
